FAERS Safety Report 5619783-8 (Version None)
Quarter: 2008Q1

REPORT INFORMATION
  Report Type: 
  Country: None (occurrence: None)
  Receive Date: 20080208
  Receipt Date: 20080129
  Transmission Date: 20080703
  Serious: Yes (Other)
  Sender: FDA-Public Use
  Company Number: US-JNJFOC-20080200316

PATIENT
  Sex: Female
  Weight: 136.08 kg

DRUGS (3)
  1. DURAGESIC-100 [Suspect]
     Indication: PAIN
     Route: 062
  2. PHENERGAN HCL [Concomitant]
     Indication: NAUSEA
     Dosage: EVERY 4-6 HOURS
     Route: 048
  3. TOPAMAX [Concomitant]
     Indication: EPILEPSY
     Route: 048

REACTIONS (7)
  - APPLICATION SITE IRRITATION [None]
  - APPLICATION SITE VESICLES [None]
  - DRUG INEFFECTIVE [None]
  - GENERAL PHYSICAL HEALTH DETERIORATION [None]
  - INCORRECT DRUG ADMINISTRATION DURATION [None]
  - PHARMACEUTICAL PRODUCT COMPLAINT [None]
  - WITHDRAWAL SYNDROME [None]
